FAERS Safety Report 7653591-1 (Version None)
Quarter: 2011Q3

REPORT INFORMATION
  Report Type: 
  Country: None (occurrence: None)
  Receive Date: 20110728
  Receipt Date: 20101210
  Transmission Date: 20111222
  Serious: Yes (Other)
  Sender: FDA-Public Use
  Company Number: 2010SP064254

PATIENT
  Age: 40 Year
  Sex: Male

DRUGS (1)
  1. INTRON A [Suspect]
     Indication: MALIGNANT MELANOMA
     Dates: start: 20100101

REACTIONS (3)
  - CEREBROVASCULAR ACCIDENT [None]
  - RETINAL HAEMORRHAGE [None]
  - ENCEPHALOPATHY [None]
